FAERS Safety Report 8472733-1 (Version None)
Quarter: 2012Q2

REPORT INFORMATION
  Report Type: 
  Country: None (occurrence: None)
  Receive Date: 20120627
  Receipt Date: 20120608
  Transmission Date: 20120825
  Serious: No
  Sender: FDA-Public Use
  Company Number: US-ASTRAZENECA-2012SE38989

PATIENT
  Age: 76 Year
  Sex: Female

DRUGS (1)
  1. SYMBICORT [Suspect]
     Dosage: UNKNOWN, 6 PUFFS THREE TIMES A DAY
     Route: 055

REACTIONS (5)
  - LACRIMATION INCREASED [None]
  - EYE PRURITUS [None]
  - HYPERSENSITIVITY [None]
  - CHEST PAIN [None]
  - INTENTIONAL DRUG MISUSE [None]
